FAERS Safety Report 6590504-8 (Version None)
Quarter: 2010Q1

REPORT INFORMATION
  Report Type: 
  Country: None (occurrence: None)
  Receive Date: 20100219
  Receipt Date: 20100215
  Transmission Date: 20100710
  Serious: Yes (Hospitalization)
  Sender: FDA-Public Use
  Company Number: FR-ROCHE-685531

PATIENT
  Sex: Female

DRUGS (15)
  1. RIVOTRIL [Suspect]
     Indication: DRUG USE FOR UNKNOWN INDICATION
     Route: 048
     Dates: start: 20100107, end: 20100123
  2. OFLOCET [Suspect]
     Indication: DRUG USE FOR UNKNOWN INDICATION
     Route: 048
     Dates: start: 20100106, end: 20100120
  3. FLAGYL [Suspect]
     Indication: DRUG USE FOR UNKNOWN INDICATION
     Route: 048
     Dates: start: 20100106, end: 20100122
  4. FLAGYL [Suspect]
     Dosage: REINTRODUCED
     Route: 048
  5. LAMALINE [Suspect]
     Indication: DRUG USE FOR UNKNOWN INDICATION
     Route: 048
     Dates: start: 20100107, end: 20100123
  6. OMEPRAZOLE [Suspect]
     Indication: DRUG USE FOR UNKNOWN INDICATION
     Route: 048
     Dates: start: 20100108, end: 20100126
  7. LOVENOX [Concomitant]
     Route: 058
  8. NEORAL [Concomitant]
     Route: 048
  9. CORTANCYL [Concomitant]
     Route: 048
  10. CELLCEPT [Concomitant]
  11. LEVOTHYROXINE SODIUM [Concomitant]
     Route: 048
  12. SECTRAL [Concomitant]
     Route: 048
  13. UN-ALFA [Concomitant]
     Route: 048
  14. LASILIX [Concomitant]
     Route: 048
     Dates: start: 20100112
  15. CORDARONE [Concomitant]
     Route: 048
     Dates: start: 20100108, end: 20100126

REACTIONS (1)
  - HEPATITIS CHOLESTATIC [None]
